FAERS Safety Report 21377769 (Version 2)
Quarter: 2023Q1

REPORT INFORMATION
  Report Type: Spontaneous
  Country: ES (occurrence: ES)
  Receive Date: 20220926
  Receipt Date: 20230301
  Transmission Date: 20230417
  Serious: Yes (Other)
  Sender: FDA-Public Use
  Company Number: ES-VERTEX PHARMACEUTICALS-2022-014313

PATIENT

DRUGS (2)
  1. IVACAFTOR\TEZACAFTOR [Suspect]
     Active Substance: IVACAFTOR\TEZACAFTOR
     Indication: Cystic fibrosis
     Dosage: 1 TABLET (100MG/150MG), QD (IN MORNING)
     Route: 048
  2. KALYDECO [Suspect]
     Active Substance: IVACAFTOR
     Indication: Cystic fibrosis
     Dosage: 150 MG, QD (IN EVENING)
     Route: 048

REACTIONS (1)
  - Hepatotoxicity [Unknown]
